FAERS Safety Report 10156364 (Version 2)
Quarter: 2014Q3

REPORT INFORMATION
  Report Type: Spontaneous
  Country: FR (occurrence: FR)
  Receive Date: 20140507
  Receipt Date: 20140917
  Transmission Date: 20150326
  Serious: Yes (Hospitalization, Other)
  Sender: FDA-Public Use
  Company Number: FR-BRISTOL-MYERS SQUIBB COMPANY-20685848

PATIENT
  Age: 39 Year
  Sex: Female

DRUGS (2)
  1. YERVOY [Suspect]
     Active Substance: IPILIMUMAB
     Indication: MALIGNANT MELANOMA
     Dosage: 5MG/ML SOL TO BE DILUTED?RE-ADMINISTERED 21MAR14?4TH COURSE: 06JUN14
     Route: 042
     Dates: start: 20140124
  2. YERVOY [Suspect]
     Active Substance: IPILIMUMAB
     Indication: METASTASES TO LIVER
     Dosage: 5MG/ML SOL TO BE DILUTED?RE-ADMINISTERED 21MAR14?4TH COURSE: 06JUN14
     Route: 042
     Dates: start: 20140124

REACTIONS (4)
  - Hepatic function abnormal [Unknown]
  - Dermatomyositis [Recovering/Resolving]
  - Polyneuropathy [Not Recovered/Not Resolved]
  - Therapeutic response decreased [Unknown]

NARRATIVE: CASE EVENT DATE: 201403
